FAERS Safety Report 7537925-4 (Version None)
Quarter: 2011Q2

REPORT INFORMATION
  Report Type: 
  Country: None (occurrence: None)
  Receive Date: 20110609
  Receipt Date: 20110531
  Transmission Date: 20111010
  Serious: Yes (Death)
  Sender: FDA-Public Use
  Company Number: EC-GENENTECH-319762

PATIENT
  Sex: Male
  Weight: 70.8 kg

DRUGS (5)
  1. DOXORUBICIN HCL [Concomitant]
     Indication: LYMPHOMA
     Dosage: 50 MG/M2, Q3W
     Route: 042
     Dates: start: 20101021, end: 20110216
  2. CYCLOPHOSPHAMIDE [Concomitant]
     Indication: LYMPHOMA
     Dosage: 750 MG/M2, Q3W
     Route: 042
     Dates: start: 20101021, end: 20110216
  3. RITUXAN [Suspect]
     Indication: LYMPHOMA
     Dosage: 375 MG/M2, Q3W
     Route: 042
     Dates: start: 20101021, end: 20110216
  4. VINCRISTINE [Concomitant]
     Indication: LYMPHOMA
     Dosage: 1.4 MG/M2, Q3W
     Route: 042
     Dates: start: 20101021, end: 20110216
  5. PREDNISOLONE [Concomitant]
     Indication: LYMPHOMA
     Dosage: 40 MG/M2, Q3W
     Route: 042
     Dates: start: 20101021, end: 20110216

REACTIONS (1)
  - CARDIO-RESPIRATORY ARREST [None]
